FAERS Safety Report 4487726-9 (Version None)
Quarter: 2004Q4

REPORT INFORMATION
  Report Type: 
  Country: None (occurrence: None)
  Receive Date: 20041025
  Receipt Date: 20041014
  Transmission Date: 20050328
  Serious: Yes (Hospitalization, Other)
  Sender: FDA-Public Use
  Company Number: HQ2593227JUN2001

PATIENT
  Age: 72 Year
  Sex: Male

DRUGS (17)
  1. SIROLIMUS (SIROLIMUS, SOLUTION) [Suspect]
     Indication: RENAL TRANSPLANT
     Dosage: 3 MG 1X PER 1 DAY
     Route: 048
     Dates: start: 20010523
  2. ROCEPHIN [Concomitant]
  3. REFOBACIN (GENTAMICIN SULFATE) [Concomitant]
  4. CLARITHROMYCIN [Concomitant]
  5. FRAXAPARIN (HEPARIN-FRACTION, CALCIUM SALT) [Concomitant]
  6. PREDNISONE [Concomitant]
  7. MOTENS (LACIDIPINE) [Concomitant]
  8. ATENOLOL [Concomitant]
  9. CLONIDINE [Concomitant]
  10. AZATHIOPRINE SODIUM [Concomitant]
  11. DIGITOXIN TAB [Concomitant]
  12. ZYLORIC (ALLOPURINOL) [Concomitant]
  13. CALCIFORTE (CALCIUM CHLORIDE DIHYDRATE/CALCIUM GLUCEPATE/CALCIUM GLUCO [Concomitant]
  14. DOSS (DANTRON/DOCUSATE SODIUM) [Concomitant]
  15. ANTRA (OMEPRAZOLE) [Concomitant]
  16. FERLECIT (FERRIC SODIUM GLUCONATE COMPLEX) [Concomitant]
  17. RECORMON (ERYTHROPOIETIN HUMAN) [Concomitant]

REACTIONS (10)
  - ANAEMIA [None]
  - ANGINA UNSTABLE [None]
  - CARDIAC FAILURE [None]
  - DIALYSIS [None]
  - MYOCARDIAL INFARCTION [None]
  - MYOCARDIAL ISCHAEMIA [None]
  - PNEUMONIA [None]
  - PULMONARY OEDEMA [None]
  - RENAL FAILURE ACUTE [None]
  - RETROPERITONEAL HAEMATOMA [None]
